FAERS Safety Report 9517986 (Version 1)
Quarter: 2013Q3

REPORT INFORMATION
  Report Type: Spontaneous
  Country: US (occurrence: US)
  Receive Date: 20130912
  Receipt Date: 20130912
  Transmission Date: 20140515
  Serious: No
  Sender: FDA-Public Use
  Company Number: US-PFIZER INC-2013258589

PATIENT
  Sex: Female

DRUGS (1)
  1. MYCOBUTIN [Suspect]
     Indication: BARTONELLOSIS
     Dosage: 300 MG (2 CAPSULES OF 150MG), 2X/DAY
     Dates: start: 201108, end: 20130905

REACTIONS (2)
  - Off label use [Unknown]
  - Skin discolouration [Unknown]
